FAERS Safety Report 9085481 (Version 1)
Quarter: 2013Q1

REPORT INFORMATION
  Report Type: Report from Study
  Country: US (occurrence: US)
  Receive Date: 20130131
  Receipt Date: 20130131
  Transmission Date: 20140127
  Serious: No
  Sender: FDA-Public Use
  Company Number: US-ABBOTT-12P-163-0998354-00

PATIENT
  Age: 45 Year
  Sex: Female

DRUGS (16)
  1. HUMIRA [Suspect]
     Indication: CROHN^S DISEASE
     Dates: start: 20120920
  2. KLONOPIN [Concomitant]
     Indication: ANXIETY
     Dosage: 3 PILLS IN AM AND 3 PILLS IN PM
  3. LIDOCAINE HYDROCORTISONE [Concomitant]
     Indication: PAIN
  4. VITAMIN D [Concomitant]
     Indication: VITAMIN D DECREASED
     Dosage: WEEKLY
  5. VITAMIN B12 [Concomitant]
     Indication: VITAMIN B12 DECREASED
     Dosage: MONTHLY
  6. CIPRO [Concomitant]
     Indication: GASTROINTESTINAL INFECTION
  7. FLAGYL [Concomitant]
     Indication: GASTROINTESTINAL INFECTION
  8. SINGULAIR [Concomitant]
     Indication: FOOD ALLERGY
     Dosage: 10MG DAILY
  9. ZYRTEC [Concomitant]
     Indication: FOOD ALLERGY
     Dosage: 5MG DAILY
  10. ZANTAC [Concomitant]
     Indication: GASTROOESOPHAGEAL REFLUX DISEASE
     Dosage: 2-3 TABS TWICE DAILY
  11. LEXAPRO [Concomitant]
     Indication: ANXIETY
     Dosage: 5MG DAILY
  12. ALBUTEROL [Concomitant]
     Indication: ASTHMA
     Dosage: 2 PUFFS AS NEEDED
  13. TOPAMAX [Concomitant]
     Indication: MIGRAINE
     Dosage: 3 TABS TWICE DAILY
  14. PHENERGAN [Concomitant]
     Indication: NAUSEA
     Dosage: 25MG AS NEEDED
  15. PREDNISONE [Concomitant]
     Indication: CROHN^S DISEASE
     Dosage: 10MG DAILY
  16. BENADRYL [Concomitant]
     Indication: HYPERSENSITIVITY

REACTIONS (8)
  - Dizziness [Not Recovered/Not Resolved]
  - Nausea [Not Recovered/Not Resolved]
  - Fall [Not Recovered/Not Resolved]
  - Pain in extremity [Not Recovered/Not Resolved]
  - Back pain [Not Recovered/Not Resolved]
  - Arthralgia [Not Recovered/Not Resolved]
  - Ligament sprain [Not Recovered/Not Resolved]
  - Ligament sprain [Not Recovered/Not Resolved]
